FAERS Safety Report 8583239 (Version 4)
Quarter: 2015Q2

REPORT INFORMATION
  Report Type: Spontaneous
  Country: JP (occurrence: JP)
  Receive Date: 20120529
  Receipt Date: 20150525
  Transmission Date: 20150821
  Serious: Yes (Disabling, Other)
  Sender: FDA-Public Use
  Company Number: PHHY2012JP045154

PATIENT
  Age: 63 Year
  Sex: Female
  Weight: 48 kg

DRUGS (6)
  1. SIMULECT [Suspect]
     Active Substance: BASILIXIMAB
     Indication: RENAL TRANSPLANT
     Dosage: 20 MG, QD
     Route: 042
     Dates: start: 20120223
  2. NEORAL [Suspect]
     Active Substance: CYCLOSPORINE
     Indication: RENAL TRANSPLANT
     Dosage: 300 MG, QD
     Route: 048
     Dates: start: 20120220, end: 20120229
  3. SOLU-MEDROL [Suspect]
     Active Substance: METHYLPREDNISOLONE SODIUM SUCCINATE
     Indication: RENAL TRANSPLANT
     Dosage: 500 MG, QD
     Route: 042
     Dates: start: 20120223, end: 20120229
  4. CERTICAN [Suspect]
     Active Substance: EVEROLIMUS
     Indication: RENAL TRANSPLANT
     Dosage: 0.75 MG, BID
     Route: 048
     Dates: start: 20120220, end: 20120229
  5. THYMOGLOBULINE [Suspect]
     Active Substance: LAPINE T-LYMPHOCYTE IMMUNE GLOBULIN
     Indication: RENAL TRANSPLANT
     Dosage: 75 MG, QD
     Route: 042
     Dates: start: 20120227, end: 20120228
  6. SIMULECT [Suspect]
     Active Substance: BASILIXIMAB
     Dosage: 20 MG, QD
     Route: 042
     Dates: start: 20120227

REACTIONS (12)
  - Renal haemorrhage [Not Recovered/Not Resolved]
  - Kidney rupture [Not Recovered/Not Resolved]
  - Kidney transplant rejection [Not Recovered/Not Resolved]
  - Urine output decreased [Unknown]
  - White blood cell count decreased [Unknown]
  - Blood urea increased [Unknown]
  - Platelet count decreased [Unknown]
  - Haematocrit decreased [Unknown]
  - Haemoglobin decreased [Unknown]
  - Renal mass [Unknown]
  - Red blood cell count decreased [Unknown]
  - Anaemia [Unknown]

NARRATIVE: CASE EVENT DATE: 20120226
